FAERS Safety Report 9961459 (Version 2)
Quarter: 2014Q1

REPORT INFORMATION
  Report Type: Report from Study
  Country: CA (occurrence: CA)
  Receive Date: 20140305
  Receipt Date: 20140312
  Transmission Date: 20141002
  Serious: Yes (Death)
  Sender: FDA-Public Use
  Company Number: PHHY2014CA026179

PATIENT
  Age: 68 Year
  Sex: Female

DRUGS (5)
  1. CLOZARIL [Suspect]
     Dosage: UNK UKN, UNK
     Dates: start: 20081022
  2. NORVASC [Concomitant]
     Dosage: UNK UKN, UNK
  3. RAMIPRIL [Concomitant]
     Dosage: UNK UKN, UNK
  4. L-DOPA [Concomitant]
     Dosage: UNK UKN, UNK
  5. DEXTOLAR [Concomitant]
     Dosage: UNK UKN, UNK

REACTIONS (1)
  - Death [Fatal]
